FAERS Safety Report 6980666-2 (Version None)
Quarter: 2010Q3

REPORT INFORMATION
  Report Type: 
  Country: None (occurrence: None)
  Receive Date: 20100914
  Receipt Date: 20100907
  Transmission Date: 20110219
  Serious: Yes (Other)
  Sender: FDA-Public Use
  Company Number: CHPA2010CA14380

PATIENT
  Age: 30 Year
  Sex: Male
  Weight: 104.31 kg

DRUGS (4)
  1. HABITROL [Suspect]
     Indication: SMOKING CESSATION THERAPY
     Dosage: 21 MG, QD
     Route: 062
     Dates: start: 20100905, end: 20100905
  2. EPIVAL [Concomitant]
     Indication: DEPRESSION
     Dosage: 1 DF, BID
     Route: 048
  3. ZYPREXA [Concomitant]
     Indication: BIPOLAR DISORDER
     Dosage: 1 DF, BID
     Route: 048
  4. INSULIN [Concomitant]
     Indication: DIABETES MELLITUS
     Dosage: UNK

REACTIONS (3)
  - AMNESIA [None]
  - FATIGUE [None]
  - LOSS OF CONSCIOUSNESS [None]
